FAERS Safety Report 4586841-9 (Version None)
Quarter: 2005Q1

REPORT INFORMATION
  Report Type: 
  Country: None (occurrence: None)
  Receive Date: 20050217
  Receipt Date: 20050217
  Transmission Date: 20050727
  Serious: Yes (Life-Threatening, Hospitalization, Disabling)
  Sender: FDA-Public Use
  Company Number: None

PATIENT
  Sex: Male
  Weight: 90.7194 kg

DRUGS (1)
  1. RISPERIDONE [Suspect]
     Indication: SCHIZOPHRENIA, PARANOID TYPE
     Dosage: 2MG   TWICE DAILY   ORAL
     Route: 048
     Dates: start: 20020101, end: 20030122

REACTIONS (5)
  - DRY MOUTH [None]
  - ERECTILE DYSFUNCTION [None]
  - PHOTOSENSITIVITY REACTION [None]
  - RASH [None]
  - TREMOR [None]
